FAERS Safety Report 7990873-8 (Version None)
Quarter: 2011Q4

REPORT INFORMATION
  Report Type: 
  Country: None (occurrence: None)
  Receive Date: 20111219
  Receipt Date: 20111214
  Transmission Date: 20120403
  Serious: Yes (Hospitalization)
  Sender: FDA-Public Use
  Company Number: DE-ROCHE-1002562

PATIENT
  Age: 71 Year
  Sex: Female

DRUGS (11)
  1. OXAZEPAM [Concomitant]
     Route: 065
  2. IRINOTECAN HCL [Suspect]
     Indication: PRODUCT USED FOR UNKNOWN INDICATION
     Dates: start: 20111116, end: 20111130
  3. AVASTIN [Suspect]
     Indication: RECTAL CANCER
     Route: 065
     Dates: start: 20111116, end: 20111130
  4. FLUOROURACIL [Suspect]
     Indication: PRODUCT USED FOR UNKNOWN INDICATION
     Dates: start: 20111116, end: 20111130
  5. OMEPRAZOLE [Concomitant]
     Route: 065
  6. LEUCOVORIN CALCIUM [Suspect]
     Indication: PRODUCT USED FOR UNKNOWN INDICATION
     Dates: start: 20111116, end: 20111130
  7. CAPTOHEXAL [Concomitant]
     Route: 065
  8. ALENDRON [Concomitant]
     Route: 065
  9. DICLOFENAC [Concomitant]
     Route: 065
  10. VITAMIN D [Concomitant]
     Route: 065
  11. CEFASEL [Concomitant]
     Route: 065

REACTIONS (6)
  - DEHYDRATION [None]
  - LEUKOPENIA [None]
  - DIARRHOEA [None]
  - GASTROENTERITIS [None]
  - RENAL IMPAIRMENT [None]
  - HYPOCALCAEMIA [None]
